FAERS Safety Report 9918493 (Version 1)
Quarter: 2014Q1

REPORT INFORMATION
  Report Type: Spontaneous
  Country: US (occurrence: US)
  Receive Date: 20140224
  Receipt Date: 20140224
  Transmission Date: 20141002
  Serious: No
  Sender: FDA-Public Use
  Company Number: US-BIOGENIDEC-2014BI014430

PATIENT
  Sex: Female

DRUGS (14)
  1. TECFIDERA [Suspect]
     Indication: MULTIPLE SCLEROSIS
     Route: 048
     Dates: start: 20131224
  2. TECFIDERA [Suspect]
     Indication: MULTIPLE SCLEROSIS
  3. BIOTIN [Concomitant]
  4. FISH OIL [Concomitant]
  5. MIGRAGESIC [Concomitant]
  6. MORPHINE [Concomitant]
  7. PROMETHAZINE [Concomitant]
  8. VIACTIV [Concomitant]
  9. VITAMIN D3 [Concomitant]
  10. XANAX [Concomitant]
  11. ZOCOR [Concomitant]
  12. AMOXICILLIN [Concomitant]
  13. HYDROCODONE [Concomitant]
  14. PENICILLIN V POTASSIUM [Concomitant]

REACTIONS (4)
  - Chills [Unknown]
  - Hyperhidrosis [Unknown]
  - Prescribed underdose [Unknown]
  - Abdominal pain upper [Unknown]
